FAERS Safety Report 6438759-4 (Version None)
Quarter: 2009Q4

REPORT INFORMATION
  Report Type: 
  Country: None (occurrence: None)
  Receive Date: 20091113
  Receipt Date: 20091105
  Transmission Date: 20100525
  Serious: Yes (Other)
  Sender: FDA-Public Use
  Company Number: US-JNJFOC-20091102311

PATIENT
  Age: 56 Year
  Sex: Female
  Weight: 62.6 kg

DRUGS (1)
  1. TOPAMAX [Suspect]
     Indication: CONVULSION
     Dosage: 50 MGX 4 TABLETS
     Route: 048

REACTIONS (4)
  - CRYING [None]
  - MEMORY IMPAIRMENT [None]
  - OSTEOPOROSIS [None]
  - SPEECH DISORDER [None]
